FAERS Safety Report 9714137 (Version 1)
Quarter: 2013Q4

REPORT INFORMATION
  Report Type: Spontaneous
  Country: US (occurrence: US)
  Receive Date: 20131126
  Receipt Date: 20131126
  Transmission Date: 20140711
  Serious: No
  Sender: FDA-Public Use
  Company Number: US-GILEAD-2008-0019012

PATIENT
  Sex: Female
  Weight: 48.99 kg

DRUGS (13)
  1. LETAIRIS [Suspect]
     Indication: COR PULMONALE CHRONIC
     Route: 048
     Dates: start: 20070826
  2. MULTIVITAMIN [Concomitant]
  3. REVATIO [Concomitant]
  4. DILTIAZEM [Concomitant]
  5. LASIX [Concomitant]
  6. PLAVIX [Concomitant]
  7. POTASSIUM CHLORIDE [Concomitant]
  8. ZETIA [Concomitant]
  9. ABILIFY [Concomitant]
  10. XANAX [Concomitant]
  11. EFFEXOR [Concomitant]
  12. VITAMIN B12 [Concomitant]
  13. LEVOXYL [Concomitant]

REACTIONS (1)
  - Oedema [None]
